FAERS Safety Report 9748236 (Version 1)
Quarter: 2013Q4

REPORT INFORMATION
  Report Type: Spontaneous
  Country: US (occurrence: None)
  Receive Date: 20131206
  Receipt Date: 20131206
  Transmission Date: 20140711
  Serious: Yes (Other)
  Sender: FDA-Public Use
  Company Number: FK201305132

PATIENT
  Sex: 0

DRUGS (1)
  1. NAROPIN INJECTION (ROPIVACAINE HYDROCHLORIDE) (ROPIVACAINE HYDROCHLORIDE) [Suspect]
     Indication: PAIN MANAGEMENT
     Route: 048

REACTIONS (1)
  - Cellulitis [None]
